FAERS Safety Report 6493037-2 (Version None)
Quarter: 2009Q4

REPORT INFORMATION
  Report Type: 
  Country: None (occurrence: None)
  Receive Date: 20091214
  Receipt Date: 20091204
  Transmission Date: 20100525
  Serious: Yes (Life-Threatening)
  Sender: FDA-Public Use
  Company Number: GXKR2009FR13121

PATIENT

DRUGS (2)
  1. SUCCINYLCHOLINE CHLORIDE (NGX) [Suspect]
     Dosage: MATERNAL DOSE: 70 MG
     Route: 064
  2. PROPOFOL [Concomitant]
     Dosage: 200 MG, MATERNAL DOSE
     Route: 064

REACTIONS (4)
  - BRADYCARDIA FOETAL [None]
  - CAESAREAN SECTION [None]
  - DRUG EXPOSURE DURING PREGNANCY [None]
  - ENDOTRACHEAL INTUBATION [None]
